FAERS Safety Report 8564708-9 (Version None)
Quarter: 2012Q3

REPORT INFORMATION
  Report Type: 
  Country: None (occurrence: None)
  Receive Date: 20120803
  Receipt Date: 20120724
  Transmission Date: 20120928
  Serious: Yes (Other)
  Sender: FDA-Public Use
  Company Number: CA-JNJFOC-20120712686

PATIENT
  Sex: Female

DRUGS (5)
  1. METHOTREXATE [Concomitant]
     Indication: RHEUMATOID ARTHRITIS
  2. SIMPONI [Suspect]
     Indication: RHEUMATOID ARTHRITIS
     Route: 058
     Dates: start: 20120724
  3. PREDNISONE [Concomitant]
     Route: 048
  4. PREDNISONE [Concomitant]
     Indication: DYSPNOEA
     Route: 048
  5. SIMPONI [Suspect]
     Route: 058
     Dates: start: 20110328

REACTIONS (2)
  - CONTUSION [None]
  - EYE HAEMORRHAGE [None]
